FAERS Safety Report 7178938-4 (Version None)
Quarter: 2010Q4

REPORT INFORMATION
  Report Type: 
  Country: None (occurrence: None)
  Receive Date: 20101221
  Receipt Date: 20101206
  Transmission Date: 20110411
  Serious: Yes (Other)
  Sender: FDA-Public Use
  Company Number: PHHY2010BR83664

PATIENT
  Age: 49 Year
  Sex: Female

DRUGS (7)
  1. FORASEQ [Suspect]
     Indication: ASTHMA
     Dosage: 1 INHALATION WITH EACH ACTIVE PRINCIPLE, TWICE A DAY
  2. MIFLONIDE [Suspect]
     Indication: ASTHMA
     Dosage: 1 INHALATION, TWICE A DAY
  3. METICORTEN [Concomitant]
     Dosage: 20 MG
  4. VIBRAMICINA [Concomitant]
     Indication: ASTHMA
     Dosage: UNK
  5. COMBIVENT [Concomitant]
     Indication: ASTHMA
  6. FLUOXETINE HCL [Concomitant]
     Dosage: 20 MG IN THE MORNING
  7. FRONTAL [Concomitant]
     Dosage: 1 TABLET OF  0.5 MG AT NIGHT

REACTIONS (5)
  - ANXIETY [None]
  - ASTHMA [None]
  - DEPRESSION [None]
  - INSOMNIA [None]
  - SYNCOPE [None]
